FAERS Safety Report 8951101 (Version 3)
Quarter: 2013Q1

REPORT INFORMATION
  Report Type: Spontaneous
  Country: US (occurrence: None)
  Receive Date: 20121129
  Receipt Date: 20121206
  Transmission Date: 20140127
  Serious: Yes (Other)
  Sender: FDA-Public Use
  Company Number: JPI-P-026426

PATIENT
  Age: 37 Year
  Sex: Female
  Weight: 42.46 kg

DRUGS (3)
  1. XYREM [Suspect]
     Indication: NARCOLEPSY
     Dosage: (2.25 GM, 2 IN 1 D)
     Route: 048
     Dates: start: 20120711, end: 2012
  2. TOPIRAMATE [Concomitant]
  3. VENLAFAXINE HYDROCHLORIDE [Concomitant]

REACTIONS (8)
  - Renal cancer [None]
  - Nasopharyngitis [None]
  - Nasal congestion [None]
  - Cough [None]
  - Oropharyngeal pain [None]
  - Feeling abnormal [None]
  - Memory impairment [None]
  - Hypersomnia [None]
